FAERS Safety Report 9604313 (Version 1)
Quarter: 2013Q4

REPORT INFORMATION
  Report Type: Spontaneous
  Country: GB (occurrence: GB)
  Receive Date: 20131008
  Receipt Date: 20131008
  Transmission Date: 20140711
  Serious: Yes (Other)
  Sender: FDA-Public Use
  Company Number: GB-ASTRAZENECA-2013SE72547

PATIENT
  Age: 71 Year
  Sex: Female
  Weight: 59 kg

DRUGS (5)
  1. NEXIUM [Suspect]
     Indication: DYSPEPSIA
     Route: 048
     Dates: start: 20120304, end: 20130712
  2. ASPIRIN [Concomitant]
  3. BISOPROLOL [Concomitant]
  4. NICORANDIL [Concomitant]
  5. SIMVASTATIN [Concomitant]

REACTIONS (3)
  - Haematochezia [Unknown]
  - Colitis [Recovered/Resolved]
  - Mucous stools [Unknown]
